FAERS Safety Report 17139451 (Version 1)
Quarter: 2019Q4

REPORT INFORMATION
  Report Type: Spontaneous
  Country: US (occurrence: US)
  Receive Date: 20191210
  Receipt Date: 20191210
  Transmission Date: 20200122
  Serious: Yes (Other)
  Sender: FDA-Public Use
  Company Number: None

PATIENT
  Age: 68 Year
  Sex: Male
  Weight: 67.05 kg

DRUGS (1)
  1. PRALUENT [Suspect]
     Active Substance: ALIROCUMAB
     Indication: LIPIDS ABNORMAL
     Dosage: ?          OTHER FREQUENCY:Q2WEEK;?
     Route: 058
     Dates: start: 20191101, end: 20191204

REACTIONS (4)
  - Abnormal dreams [None]
  - Poor quality sleep [None]
  - Insurance issue [None]
  - Product substitution issue [None]

NARRATIVE: CASE EVENT DATE: 20191202
